FAERS Safety Report 11327018 (Version 5)
Quarter: 2016Q1

REPORT INFORMATION
  Report Type: Report from Study
  Country: GB (occurrence: GB)
  Receive Date: 20150731
  Receipt Date: 20160113
  Transmission Date: 20160525
  Serious: No
  Sender: FDA-Public Use
  Company Number: PHHO2015GB012168

PATIENT
  Age: 32 Year
  Sex: Male
  Weight: 83 kg

DRUGS (3)
  1. EVEROLIMUS [Suspect]
     Active Substance: EVEROLIMUS
     Indication: EPILEPSY
     Dosage: 9-15 NG/ML, UNK
     Route: 048
     Dates: start: 20140903
  2. COCODAMOL [Concomitant]
     Active Substance: ACETAMINOPHEN\CODEINE PHOSPHATE
     Indication: ARTHRALGIA
     Dosage: 2 DF, PRN
     Route: 065
     Dates: start: 20150505, end: 20150506
  3. COCODAMOL [Concomitant]
     Active Substance: ACETAMINOPHEN\CODEINE PHOSPHATE
     Indication: PAIN IN EXTREMITY

REACTIONS (1)
  - Bone marrow oedema [Recovering/Resolving]

NARRATIVE: CASE EVENT DATE: 20150714
